FAERS Safety Report 13701807 (Version 2)
Quarter: 2018Q1

REPORT INFORMATION
  Report Type: Report from Study
  Country: US (occurrence: BR)
  Receive Date: 20170629
  Receipt Date: 20180109
  Transmission Date: 20180508
  Serious: Yes (Death, Hospitalization, Other)
  Sender: FDA-Public Use
  Company Number: US-SUNOVION-2017SUN002688

PATIENT
  Sex: Female
  Weight: 110 kg

DRUGS (2)
  1. GLYCOPYRROLATE. [Suspect]
     Active Substance: GLYCOPYRROLATE
     Indication: ASTHMA
  2. GLYCOPYRROLATE. [Suspect]
     Active Substance: GLYCOPYRROLATE
     Indication: LUNG DISORDER
     Dosage: UNK, QD (0.05MG)
     Route: 055
     Dates: start: 2015

REACTIONS (3)
  - Product use in unapproved indication [Unknown]
  - Pneumonia [Fatal]
  - Multiple organ dysfunction syndrome [Fatal]
